FAERS Safety Report 7308827-3 (Version None)
Quarter: 2011Q1

REPORT INFORMATION
  Report Type: 
  Country: None (occurrence: None)
  Receive Date: 20110223
  Receipt Date: 20110222
  Transmission Date: 20110831
  Serious: Yes (Life-Threatening, Hospitalization, Disabling)
  Sender: FDA-Public Use
  Company Number: PHHO2011GB03468

PATIENT
  Sex: Female
  Weight: 18 kg

DRUGS (11)
  1. SANDO K [Concomitant]
  2. FLOXACILLIN SODIUM [Concomitant]
  3. GLEEVEC [Suspect]
     Indication: ACUTE LYMPHOCYTIC LEUKAEMIA
     Route: 048
  4. MAGNESIUM GLYCEROPHOSPHATE [Concomitant]
  5. OMEPRAZOLE [Concomitant]
  6. OXYCODONE [Concomitant]
  7. GABAPENTIN [Concomitant]
  8. FOLIC ACID [Concomitant]
  9. AMILORIDE HYDROCHLORIDE [Concomitant]
  10. COLECALCIFEROL [Concomitant]
  11. COTRIM [Concomitant]

REACTIONS (6)
  - LARGE INTESTINE PERFORATION [None]
  - PNEUMATOSIS INTESTINALIS [None]
  - ABDOMINAL DISTENSION [None]
  - INTESTINAL RESECTION [None]
  - ILEOSTOMY [None]
  - CARDIAC ARREST [None]
